FAERS Safety Report 6125868-2 (Version None)
Quarter: 2009Q1

REPORT INFORMATION
  Report Type: 
  Country: None (occurrence: None)
  Receive Date: 20090320
  Receipt Date: 20090311
  Transmission Date: 20090719
  Serious: Yes (Hospitalization)
  Sender: FDA-Public Use
  Company Number: US-BIOGENIDEC-2009BI008032

PATIENT
  Age: 57 Year
  Sex: Male

DRUGS (2)
  1. AVONEX [Suspect]
     Indication: MULTIPLE SCLEROSIS
     Route: 030
     Dates: start: 20030404
  2. AVONEX [Suspect]
     Route: 030
     Dates: start: 20081026

REACTIONS (2)
  - CARPAL TUNNEL SYNDROME [None]
  - DUPUYTREN'S CONTRACTURE [None]
